FAERS Safety Report 9592442 (Version 1)
Quarter: 2013Q3

REPORT INFORMATION
  Report Type: Spontaneous
  Country: US (occurrence: None)
  Receive Date: 20130930
  Receipt Date: 20130930
  Transmission Date: 20140515
  Serious: Yes (Other)
  Sender: FDA-Public Use
  Company Number: 1000046502

PATIENT
  Sex: Female

DRUGS (1)
  1. LINZESS [Suspect]
     Indication: IRRITABLE BOWEL SYNDROME
     Dosage: 290 MCG, (290 MCG, 1 IN 1 D), ORAL
     Route: 048
     Dates: start: 20130703, end: 20130704

REACTIONS (1)
  - Diarrhoea [None]
